FAERS Safety Report 7489516-1 (Version None)
Quarter: 2011Q2

REPORT INFORMATION
  Report Type: 
  Country: None (occurrence: None)
  Receive Date: 20110519
  Receipt Date: 20110511
  Transmission Date: 20111010
  Serious: Yes (Other)
  Sender: FDA-Public Use
  Company Number: NL-AMGEN-NLDSP2011019227

PATIENT
  Age: 74 Year
  Sex: Female

DRUGS (5)
  1. FOLIC ACID [Concomitant]
     Dosage: UNK
  2. METFORMIN HCL [Concomitant]
     Dosage: 50 MG, WEEKLY
  3. VERPAMIL HCL [Concomitant]
     Dosage: UNK
  4. MTX                                /00113802/ [Concomitant]
     Dosage: UNK
  5. ENBREL [Suspect]
     Indication: PSORIATIC ARTHROPATHY
     Dosage: 50 MG, WEEKLY
     Dates: start: 20110321

REACTIONS (1)
  - THERMAL BURN [None]
